FAERS Safety Report 19376316 (Version 2)
Quarter: 2025Q2

REPORT INFORMATION
  Report Type: Spontaneous
  Country: DE (occurrence: DE)
  Receive Date: 20210604
  Receipt Date: 20250411
  Transmission Date: 20250716
  Serious: Yes (Congenital Anomaly)
  Sender: TEVA
  Company Number: DE-EMBRYOTOX-202009653

PATIENT
  Age: 0 Year
  Sex: Female
  Weight: 2.73 kg

DRUGS (4)
  1. FLECAINIDE [Suspect]
     Active Substance: FLECAINIDE
     Indication: Arrhythmia
     Dosage: 100 [MG/D (50-0-50) ] 2 SEPARATED DOSES
     Route: 064
     Dates: start: 20200214, end: 20201104
  2. BOOSTRIX [Concomitant]
     Active Substance: TETANUS TOXOID, REDUCED DIPHTHERIA TOXOID AND ACELLULAR PERTUSSIS VACCINE, ADSORBED ANTIGENS
     Indication: Immunisation
     Route: 064
     Dates: start: 20200917, end: 20200917
  3. BISOPROLOL [Suspect]
     Active Substance: BISOPROLOL
     Indication: Ventricular tachycardia
     Dosage: 2.5 [MG/D (2.5-0-0)]
     Route: 064
     Dates: start: 20200214, end: 20201104
  4. INFLUSPLIT TETRA [Concomitant]
     Active Substance: INFLUENZA VIRUS VACCINE
     Indication: Immunisation
     Route: 064
     Dates: start: 20201001, end: 20201001

REACTIONS (3)
  - Pulmonary artery stenosis [Recovered/Resolved]
  - Atrial septal defect [Recovered/Resolved]
  - Foetal exposure during pregnancy [Unknown]
